FAERS Safety Report 25322400 (Version 1)
Quarter: 2025Q2

REPORT INFORMATION
  Report Type: Report from Study
  Country: IL (occurrence: IL)
  Receive Date: 20250516
  Receipt Date: 20250516
  Transmission Date: 20250716
  Serious: Yes (Death, Other)
  Sender: ROCHE
  Company Number: IL-ROCHE-10000281026

PATIENT

DRUGS (2)
  1. MYCOPHENOLATE MOFETIL [Suspect]
     Active Substance: MYCOPHENOLATE MOFETIL
     Indication: Prophylaxis against graft versus host disease
     Dosage: FREQUENCY TEXT:ON DAY 0, 4 H AFTER STEM CELL INFUSION
     Route: 048
  2. CYCLOSPORINE [Suspect]
     Active Substance: CYCLOSPORINE
     Indication: Prophylaxis against graft versus host disease
     Route: 042

REACTIONS (8)
  - Acute graft versus host disease [Fatal]
  - Infection [Fatal]
  - Multiple organ dysfunction syndrome [Fatal]
  - Nephropathy toxic [Fatal]
  - Transplant failure [Fatal]
  - Venoocclusive disease [Fatal]
  - Completed suicide [Fatal]
  - Gastrointestinal disorder [Unknown]
